FAERS Safety Report 14845707 (Version 1)
Quarter: 2018Q2

REPORT INFORMATION
  Report Type: Spontaneous
  Country: US (occurrence: US)
  Receive Date: 20180419
  Receipt Date: 20180419
  Transmission Date: 20180711
  Serious: Yes (Other)
  Sender: FDA-Public Use
  Company Number: None

PATIENT
  Age: 70 Year
  Sex: Male

DRUGS (13)
  1. BENAZEPRIL [Concomitant]
     Active Substance: BENAZEPRIL HYDROCHLORIDE
  2. CLONIDINE. [Concomitant]
     Active Substance: CLONIDINE
  3. TRAVATAN Z OPHTHALMIC SOLUTION [Concomitant]
  4. CLONAZEPAM. [Concomitant]
     Active Substance: CLONAZEPAM
  5. TRADJENTA [Concomitant]
     Active Substance: LINAGLIPTIN
  6. NEXIUM [Concomitant]
     Active Substance: ESOMEPRAZOLE MAGNESIUM
  7. TRAMADOL. [Concomitant]
     Active Substance: TRAMADOL
  8. SUTENT [Suspect]
     Active Substance: SUNITINIB MALATE
     Indication: RENAL CELL CARCINOMA
     Dosage: ?          OTHER FREQUENCY:1 CAPSULE DAILY FO;?
     Route: 048
     Dates: start: 20170915, end: 20180329
  9. GLUMETZA [Concomitant]
     Active Substance: METFORMIN HYDROCHLORIDE
  10. PRISTIQ EXTENDED-RELEASE [Concomitant]
     Active Substance: DESVENLAFAXINE SUCCINATE
  11. ZETIA [Concomitant]
     Active Substance: EZETIMIBE
  12. GABAPENTIN. [Concomitant]
     Active Substance: GABAPENTIN
  13. GLIPIZIDE. [Concomitant]
     Active Substance: GLIPIZIDE

REACTIONS (1)
  - Blood creatinine increased [None]
